FAERS Safety Report 8318187-7 (Version None)
Quarter: 2012Q2

REPORT INFORMATION
  Report Type: 
  Country: None (occurrence: None)
  Receive Date: 20120425
  Receipt Date: 20120413
  Transmission Date: 20120825
  Serious: Yes (Death, Hospitalization)
  Sender: FDA-Public Use
  Company Number: CA-007497

PATIENT
  Age: 68 Year
  Sex: Male

DRUGS (3)
  1. HYDROMORHPHONE [Concomitant]
  2. FIRMAGON [Suspect]
     Indication: PROSTATE CANCER
     Dosage: (80 MG 1X/MONTH SUBCUTANEOUS)
     Route: 058
     Dates: start: 20110817, end: 20111208
  3. METHADONE HCL [Concomitant]

REACTIONS (3)
  - ABASIA [None]
  - UNRESPONSIVE TO STIMULI [None]
  - HYPOPHAGIA [None]
